FAERS Safety Report 19476171 (Version 4)
Quarter: 2021Q3

REPORT INFORMATION
  Report Type: Spontaneous
  Country: BR (occurrence: BR)
  Receive Date: 20210630
  Receipt Date: 20210812
  Transmission Date: 20211014
  Serious: Yes (Other)
  Sender: FDA-Public Use
  Company Number: BR-GLAXOSMITHKLINE-BR2021AMR138501

PATIENT
  Age: 75 Year
  Sex: Female

DRUGS (2)
  1. RELVAR ELLIPTA [Suspect]
     Active Substance: FLUTICASONE FUROATE\VILANTEROL TRIFENATATE
     Indication: ASTHMA
     Dosage: UNK 1 TO 2 TIMES A DAY, 1 INHALATION, 200/25MCG
     Dates: start: 20210624
  2. RELVAR ELLIPTA [Suspect]
     Active Substance: FLUTICASONE FUROATE\VILANTEROL TRIFENATATE
     Indication: CARDIAC DISORDER

REACTIONS (4)
  - Asthmatic crisis [Unknown]
  - Product use in unapproved indication [Unknown]
  - Product complaint [Unknown]
  - Product use issue [Unknown]

NARRATIVE: CASE EVENT DATE: 20210624
